FAERS Safety Report 11237710 (Version 2)
Quarter: 2015Q3

REPORT INFORMATION
  Report Type: Spontaneous
  Country: US (occurrence: US)
  Receive Date: 20150703
  Receipt Date: 20150708
  Transmission Date: 20151125
  Serious: Yes (Other)
  Sender: FDA-Public Use
  Company Number: US-ROCHE-1568768

PATIENT
  Age: 39 Year
  Sex: Female
  Weight: 95.3 kg

DRUGS (37)
  1. ALPRAZOLAM. [Concomitant]
     Active Substance: ALPRAZOLAM
  2. ARIPIPRAZOLE. [Concomitant]
     Active Substance: ARIPIPRAZOLE
  3. FOLIC ACID. [Concomitant]
     Active Substance: FOLIC ACID
  4. OMEPRAZOLE. [Concomitant]
     Active Substance: OMEPRAZOLE
  5. CLONAZEPAM. [Concomitant]
     Active Substance: CLONAZEPAM
  6. FENOFIBRATE. [Concomitant]
     Active Substance: FENOFIBRATE
  7. PROMETHAZINE [Concomitant]
     Active Substance: PROMETHAZINE\PROMETHAZINE HYDROCHLORIDE
  8. CLOTRIMAZOLE. [Concomitant]
     Active Substance: CLOTRIMAZOLE
     Dosage: TOPICAL
     Route: 065
  9. CYCLOBENZAPRINE [Concomitant]
     Active Substance: CYCLOBENZAPRINE
  10. ADVAIR HFA [Concomitant]
     Active Substance: FLUTICASONE PROPIONATE\SALMETEROL XINAFOATE
  11. NYSTATIN TOPICAL [Concomitant]
  12. CYCLOSPORINE. [Concomitant]
     Active Substance: CYCLOSPORINE
     Dosage: OPHTHALMIC DROPS
     Route: 065
  13. CELECOXIB. [Concomitant]
     Active Substance: CELECOXIB
  14. ALBUTEROL. [Concomitant]
     Active Substance: ALBUTEROL
  15. DULOXETINE. [Concomitant]
     Active Substance: DULOXETINE
  16. GABAPENTIN. [Concomitant]
     Active Substance: GABAPENTIN
  17. MAGNESIUM OXIDE. [Concomitant]
     Active Substance: MAGNESIUM OXIDE
     Route: 048
  18. METHADONE [Concomitant]
     Active Substance: METHADONE HYDROCHLORIDE
  19. MAGNESIUM SULFATE. [Concomitant]
     Active Substance: MAGNESIUM SULFATE
  20. ACYCLOVIR. [Concomitant]
     Active Substance: ACYCLOVIR
     Route: 048
  21. DOCUSATE [Concomitant]
     Active Substance: DOCUSATE
  22. VERAPAMIL [Concomitant]
     Active Substance: VERAPAMIL HYDROCHLORIDE
  23. METOCLOPRAMIDE. [Concomitant]
     Active Substance: METOCLOPRAMIDE
  24. PREDNISONE. [Concomitant]
     Active Substance: PREDNISONE
  25. CATHFLO ACTIVASE [Suspect]
     Active Substance: ALTEPLASE
     Indication: CATHETER MANAGEMENT
     Route: 050
     Dates: start: 20141204, end: 20141204
  26. HYDROMORPHONE [Concomitant]
     Active Substance: HYDROMORPHONE
  27. FUROSEMIDE. [Concomitant]
     Active Substance: FUROSEMIDE
  28. ERGOCALCIFEROL. [Concomitant]
     Active Substance: ERGOCALCIFEROL
  29. LIDOCAINE. [Concomitant]
     Active Substance: LIDOCAINE
     Dosage: LIDOCAINE PATCH
     Route: 065
  30. NILOTINIB [Concomitant]
     Active Substance: NILOTINIB
  31. SENOKOT [Concomitant]
     Active Substance: SENNOSIDES
  32. FUROSEMIDE. [Concomitant]
     Active Substance: FUROSEMIDE
  33. QUETIAPINE [Concomitant]
     Active Substance: QUETIAPINE
  34. SUMATRIPTAN. [Concomitant]
     Active Substance: SUMATRIPTAN
  35. AMILORIDE [Concomitant]
     Active Substance: AMILORIDE
  36. FLUDROCORTISONE [Concomitant]
     Active Substance: FLUDROCORTISONE
  37. INSULIN [Concomitant]
     Active Substance: INSULIN NOS

REACTIONS (3)
  - Dyspnoea [Recovered/Resolved]
  - Blood pressure increased [Recovered/Resolved]
  - Chest pain [Recovered/Resolved]

NARRATIVE: CASE EVENT DATE: 20141204
